FAERS Safety Report 4340919-3 (Version None)
Quarter: 2004Q2

REPORT INFORMATION
  Report Type: 
  Country: None (occurrence: None)
  Receive Date: 20040413
  Receipt Date: 20040331
  Transmission Date: 20050107
  Serious: Yes (Other)
  Sender: FDA-Public Use
  Company Number: 2004207280FR

PATIENT
  Sex: Female

DRUGS (3)
  1. EPIRUBICIN [Suspect]
     Indication: BREAST CANCER
     Dosage: 100 MG/M2, 6 CURES
     Dates: start: 20020408, end: 20020731
  2. FLUOROURACIL [Concomitant]
  3. ENDOXAN [Concomitant]

REACTIONS (2)
  - CARDIAC FAILURE [None]
  - PULMONARY HYPERTENSION [None]
